FAERS Safety Report 9266230 (Version 2)
Quarter: 2013Q2

REPORT INFORMATION
  Report Type: Report from Study
  Country: FR (occurrence: FR)
  Receive Date: 20130502
  Receipt Date: 20130605
  Transmission Date: 20140414
  Serious: Yes (Hospitalization)
  Sender: FDA-Public Use
  Company Number: FR-ROCHE-1218088

PATIENT
  Sex: Male
  Weight: 89 kg

DRUGS (6)
  1. RITUXIMAB [Suspect]
     Indication: MANTLE CELL LYMPHOMA
     Route: 041
     Dates: start: 20100831
  2. RITUXIMAB [Suspect]
     Route: 065
     Dates: start: 20100219, end: 201005
  3. RITUXIMAB [Suspect]
     Route: 065
     Dates: start: 201006, end: 201007
  4. BACTRIM [Concomitant]
     Indication: PROPHYLAXIS
     Route: 048
     Dates: start: 20100219
  5. ZELITREX [Concomitant]
     Indication: PROPHYLAXIS
     Route: 048
     Dates: start: 20100219
  6. LEDERFOLINE [Concomitant]
     Indication: PROPHYLAXIS
     Route: 048
     Dates: start: 20100219

REACTIONS (4)
  - Arrhythmia supraventricular [Recovered/Resolved]
  - Atrioventricular block first degree [Recovered/Resolved]
  - Ventricular arrhythmia [Recovered/Resolved]
  - Sinus arrhythmia [Recovered/Resolved]
